FAERS Safety Report 6917845-6 (Version None)
Quarter: 2010Q3

REPORT INFORMATION
  Report Type: 
  Country: None (occurrence: None)
  Receive Date: 20100810
  Receipt Date: 20090620
  Transmission Date: 20110219
  Serious: No
  Sender: FDA-Public Use
  Company Number: US-PFIZER INC-2009208447

PATIENT
  Sex: Female
  Weight: 61.2 kg

DRUGS (5)
  1. TOVIAZ [Suspect]
     Indication: HYPERTONIC BLADDER
     Dosage: 4 MG, 1X/DAY
     Route: 048
     Dates: start: 20090428, end: 20090502
  2. PREMARIN [Concomitant]
     Dosage: 0.325 MG, UNK
  3. PREVACID [Concomitant]
     Dosage: UNK
  4. LACTAID [Concomitant]
     Indication: LACTOSE INTOLERANCE
     Dosage: UNK
  5. DITROPAN [Concomitant]
     Dosage: UNK

REACTIONS (2)
  - DIARRHOEA [None]
  - DYSGEUSIA [None]
